FAERS Safety Report 5234682-1 (Version None)
Quarter: 2007Q1

REPORT INFORMATION
  Report Type: 
  Country: None (occurrence: None)
  Receive Date: 20070209
  Receipt Date: 20070201
  Transmission Date: 20070707
  Serious: Yes (Hospitalization)
  Sender: FDA-Public Use
  Company Number: FR-ABBOTT-06P-056-0353221-00

PATIENT
  Age: 44 Year
  Sex: Female

DRUGS (20)
  1. KALETRA [Suspect]
     Indication: ACQUIRED IMMUNODEFICIENCY SYNDROME
     Route: 048
     Dates: start: 20050726
  2. KALETRA [Suspect]
     Dates: start: 20060814
  3. PYRIMETHAMINE TAB [Suspect]
     Indication: CEREBRAL TOXOPLASMOSIS
     Route: 048
     Dates: start: 20050624
  4. PYRIMETHAMINE TAB [Suspect]
     Dates: start: 20060810, end: 20060909
  5. DIDANOSINE [Suspect]
     Indication: ACQUIRED IMMUNODEFICIENCY SYNDROME
     Route: 048
     Dates: start: 20050626
  6. DIDANOSINE [Suspect]
     Dates: start: 20060814
  7. LAMIVUDINE [Suspect]
     Indication: ACQUIRED IMMUNODEFICIENCY SYNDROME
     Route: 048
     Dates: start: 20060726
  8. LAMIVUDINE [Suspect]
     Dates: start: 20060814
  9. SULFADIAZINE [Suspect]
     Indication: CEREBRAL TOXOPLASMOSIS
     Route: 048
     Dates: start: 20050624
  10. SULFADIAZINE [Suspect]
     Dates: start: 20060810, end: 20060909
  11. VALPROIC ACID [Suspect]
     Indication: EPILEPSY
     Route: 048
  12. RITONAVIR [Concomitant]
     Indication: ACQUIRED IMMUNODEFICIENCY SYNDROME
     Route: 048
     Dates: start: 20060726
  13. BACTRIM [Concomitant]
     Indication: DRUG USE FOR UNKNOWN INDICATION
     Route: 042
  14. MINOCYCLINE HCL [Concomitant]
     Indication: DRUG USE FOR UNKNOWN INDICATION
  15. CLARITHROMYCIN [Concomitant]
     Indication: DRUG USE FOR UNKNOWN INDICATION
  16. NEFOPAM [Concomitant]
     Indication: DRUG USE FOR UNKNOWN INDICATION
  17. ZOLPIDEM TARTRATE [Concomitant]
     Indication: DRUG USE FOR UNKNOWN INDICATION
  18. CLOBAZAM [Concomitant]
     Indication: DRUG USE FOR UNKNOWN INDICATION
  19. GABAPENTIN [Concomitant]
     Indication: DRUG USE FOR UNKNOWN INDICATION
  20. HYDROXYZINE [Concomitant]
     Indication: DRUG USE FOR UNKNOWN INDICATION

REACTIONS (9)
  - ANAEMIA [None]
  - CEREBRAL TOXOPLASMOSIS [None]
  - CONVULSION [None]
  - DYSPHAGIA [None]
  - GAIT DISTURBANCE [None]
  - LEUKOPENIA [None]
  - NEUTROPENIA [None]
  - THROMBOCYTOPENIA [None]
  - TREATMENT NONCOMPLIANCE [None]
